FAERS Safety Report 20083095 (Version 1)
Quarter: 2021Q4

REPORT INFORMATION
  Report Type: Report from Study
  Country: IE (occurrence: IE)
  Receive Date: 20211117
  Receipt Date: 20211117
  Transmission Date: 20220303
  Serious: Yes (Hospitalization)
  Sender: FDA-Public Use
  Company Number: IE-AstraZeneca-2021A800942

PATIENT
  Sex: Male

DRUGS (2)
  1. SYNAGIS [Suspect]
     Active Substance: PALIVIZUMAB
     Indication: Diaphragmatic hernia
     Dosage: EVERY 28 DAYS15.0MG/KG AS REQUIRED
     Route: 030
     Dates: start: 20211007, end: 2021
  2. SYNAGIS [Suspect]
     Active Substance: PALIVIZUMAB
     Indication: Diaphragmatic hernia
     Dosage: AS REQUIRED
     Route: 030
     Dates: start: 20211104

REACTIONS (3)
  - Bronchiolitis [Unknown]
  - Respiratory syncytial virus test positive [Unknown]
  - Drug ineffective [Unknown]

NARRATIVE: CASE EVENT DATE: 20210101
